FAERS Safety Report 7111050-9 (Version None)
Quarter: 2010Q4

REPORT INFORMATION
  Report Type: 
  Country: None (occurrence: None)
  Receive Date: 20101112
  Receipt Date: 20101101
  Transmission Date: 20110411
  Serious: Yes (Life-Threatening)
  Sender: FDA-Public Use
  Company Number: 019657

PATIENT
  Sex: Female
  Weight: 58.1 kg

DRUGS (5)
  1. CERTOLIZUMAB PEGOL [Suspect]
     Indication: RHEUMATOID ARTHRITIS
     Dosage: SEE IMAGE, SUBCUTANEOUS
     Route: 058
     Dates: start: 20100204, end: 20100830
  2. METHOTREXATE [Concomitant]
  3. FOLIC ACID [Concomitant]
  4. LIPITOR [Concomitant]
  5. PYRIDOXINE HCL [Concomitant]

REACTIONS (33)
  - ABDOMINAL PAIN [None]
  - APHTHOUS STOMATITIS [None]
  - ARTHRALGIA [None]
  - BLOOD ALKALINE PHOSPHATASE INCREASED [None]
  - BLOOD CHLORIDE DECREASED [None]
  - BLOOD SODIUM DECREASED [None]
  - BREATH SOUNDS ABNORMAL [None]
  - CARDIOMEGALY [None]
  - DECREASED APPETITE [None]
  - DRUG DOSE OMISSION [None]
  - GRANULOMA [None]
  - GROIN PAIN [None]
  - HAEMOGLOBIN DECREASED [None]
  - HEART RATE INCREASED [None]
  - HYPERAEMIA [None]
  - HYPOTENSION [None]
  - METASTASES TO LIVER [None]
  - NAUSEA [None]
  - NEOPLASM [None]
  - NIGHT SWEATS [None]
  - OEDEMA MUCOSAL [None]
  - PAIN [None]
  - PNEUMONIA [None]
  - PNEUMOTHORAX [None]
  - PULMONARY GRANULOMA [None]
  - PULMONARY NECROSIS [None]
  - RESPIRATORY RATE INCREASED [None]
  - RHEUMATOID ARTHRITIS [None]
  - RHEUMATOID NODULE [None]
  - SARCOIDOSIS [None]
  - SEPSIS [None]
  - TUBERCULIN TEST POSITIVE [None]
  - WEIGHT DECREASED [None]
